FAERS Safety Report 8249943-1 (Version None)
Quarter: 2012Q2

REPORT INFORMATION
  Report Type: 
  Country: None (occurrence: None)
  Receive Date: 20120402
  Receipt Date: 20120319
  Transmission Date: 20120825
  Serious: Yes (Other)
  Sender: FDA-Public Use
  Company Number: AR-MYLANLABS-2012S1006154

PATIENT
  Age: 38 Year
  Sex: Female

DRUGS (3)
  1. DIDANOSINE [Suspect]
     Indication: HIV TEST POSITIVE
     Route: 065
     Dates: start: 20030101
  2. NEVIRAPINE [Concomitant]
     Indication: HIV TEST POSITIVE
     Route: 065
     Dates: start: 20010101
  3. LAMIVUDINE (EPIVIR HBV) [Concomitant]
     Indication: HIV TEST POSITIVE
     Route: 065
     Dates: start: 20010101

REACTIONS (2)
  - PORTAL HYPERTENSION [None]
  - NODULAR REGENERATIVE HYPERPLASIA [None]
